FAERS Safety Report 7705417-5 (Version None)
Quarter: 2011Q3

REPORT INFORMATION
  Report Type: 
  Country: None (occurrence: None)
  Receive Date: 20110818
  Receipt Date: 20110808
  Transmission Date: 20111222
  Serious: Yes (Other)
  Sender: FDA-Public Use
  Company Number: DSJ-2011-16525

PATIENT
  Age: 81 Year
  Sex: Female

DRUGS (7)
  1. CARDENALIN (DOXAZOSIN MESILATE) (DOXAZOSIN MESILATE) [Concomitant]
  2. LASIX [Concomitant]
  3. OLMESARTAN MEDOXOMIL [Suspect]
     Indication: HYPERTENSION
     Dosage: 20 MG, PER ORAL
     Route: 048
  4. MYONAL (EPIRIZOLE HYDROCHLORIDE) (EPIRIZOLE HYDROCHLORIDE) [Concomitant]
  5. SHAKUYAKUKANZOUTOU (HERBAL EXTRACT NOS) (HERBAL EXTRACT NOS) [Concomitant]
  6. WARFARIN SODIUM [Concomitant]
  7. HALFDIGOXIN (DIGOXIN) (DIGOXIN) [Concomitant]

REACTIONS (1)
  - HYPOGLYCAEMIA [None]
